FAERS Safety Report 25606574 (Version 1)
Quarter: 2025Q3

REPORT INFORMATION
  Report Type: Spontaneous
  Country: US (occurrence: US)
  Receive Date: 20250725
  Receipt Date: 20250725
  Transmission Date: 20251021
  Serious: Yes (Other)
  Sender: ALEXION PHARMACEUTICALS
  Company Number: US-ASTRAZENECA-202507GLO012421US

PATIENT
  Age: 66 Year
  Sex: Male

DRUGS (8)
  1. NEXIUM [Suspect]
     Active Substance: ESOMEPRAZOLE MAGNESIUM
  2. BENZONATATE [Concomitant]
     Active Substance: BENZONATATE
  3. ENOXAPARIN [Concomitant]
     Active Substance: ENOXAPARIN
  4. GABAPENTIN [Concomitant]
     Active Substance: GABAPENTIN
  5. FERROUS SULFATE [Concomitant]
     Active Substance: FERROUS SULFATE
  6. BACITRACIN [Concomitant]
     Active Substance: BACITRACIN
  7. METOPROLOL TARTRATE [Concomitant]
     Active Substance: METOPROLOL TARTRATE
  8. OXYCODONE [Concomitant]
     Active Substance: OXYCODONE

REACTIONS (1)
  - Gastric cancer [Unknown]
